FAERS Safety Report 4464797-7 (Version None)
Quarter: 2004Q4

REPORT INFORMATION
  Report Type: 
  Country: None (occurrence: None)
  Receive Date: 20041004
  Receipt Date: 20040831
  Transmission Date: 20050328
  Serious: No
  Sender: FDA-Public Use
  Company Number: US-GLAXOSMITHKLINE-A0525919A

PATIENT
  Age: 73 Year
  Sex: Male
  Weight: 73.6 kg

DRUGS (5)
  1. COREG [Suspect]
     Indication: CORONARY ARTERY DISEASE
     Dosage: 25MG TWICE PER DAY
     Route: 048
  2. LIPITOR [Concomitant]
     Dosage: 80MG PER DAY
     Route: 048
  3. LISINOPRIL [Concomitant]
     Dosage: 20MG PER DAY
     Route: 050
  4. LASIX [Concomitant]
     Dosage: 20MG PER DAY
     Route: 048
  5. KCL TAB [Concomitant]
     Dosage: 20MEQ PER DAY
     Route: 048

REACTIONS (2)
  - BRADYCARDIA [None]
  - HEART RATE INCREASED [None]
